FAERS Safety Report 5296560-1 (Version None)
Quarter: 2007Q2

REPORT INFORMATION
  Report Type: 
  Country: None (occurrence: None)
  Receive Date: 20070413
  Receipt Date: 20070402
  Transmission Date: 20071010
  Serious: Yes (Hospitalization)
  Sender: FDA-Public Use
  Company Number: JP-PFIZER INC-2006126624

PATIENT
  Sex: Female
  Weight: 46.5 kg

DRUGS (3)
  1. SOMAVERT [Suspect]
     Indication: ACROMEGALY
     Dosage: DAILY DOSE:10MG
     Route: 058
  2. PRAVASTATIN SODIUM [Concomitant]
     Route: 048
  3. ISOPHANE INSULIN [Concomitant]
     Indication: DIABETES MELLITUS
     Route: 058
     Dates: start: 20051219

REACTIONS (2)
  - ANAEMIA [None]
  - OEDEMA [None]
